FAERS Safety Report 8555608-9 (Version None)
Quarter: 2012Q3

REPORT INFORMATION
  Report Type: 
  Country: None (occurrence: None)
  Receive Date: 20120731
  Receipt Date: 20111227
  Transmission Date: 20120928
  Serious: No
  Sender: FDA-Public Use
  Company Number: US-ASTRAZENECA-2010SE58034

PATIENT
  Age: 601 Month
  Sex: Female
  Weight: 104.3 kg

DRUGS (10)
  1. SEROQUEL XR [Suspect]
     Indication: NEUROPATHY PERIPHERAL
     Route: 048
     Dates: start: 20100601, end: 20100801
  2. NEURONTIN [Concomitant]
  3. PERCOCET [Concomitant]
  4. SEROQUEL XR [Suspect]
     Route: 048
  5. XANAX [Concomitant]
  6. SEROQUEL XR [Suspect]
     Indication: INSOMNIA
     Route: 048
     Dates: start: 20100601, end: 20100801
  7. ALLOPURINOL [Concomitant]
  8. SEROQUEL XR [Suspect]
     Route: 048
  9. SEROQUEL XR [Suspect]
     Route: 048
  10. SEROQUEL XR [Suspect]
     Route: 048

REACTIONS (5)
  - DRUG DOSE OMISSION [None]
  - OFF LABEL USE [None]
  - NASOPHARYNGITIS [None]
  - THERAPEUTIC RESPONSE UNEXPECTED [None]
  - INSOMNIA [None]
